FAERS Safety Report 23634558 (Version 2)
Quarter: 2024Q1

REPORT INFORMATION
  Report Type: Report from Study
  Country: CO (occurrence: CO)
  Receive Date: 20240315
  Receipt Date: 20240330
  Transmission Date: 20240409
  Serious: Yes (Other)
  Sender: FDA-Public Use
  Company Number: CO-ABBVIE-5676850

PATIENT
  Age: 55 Year
  Sex: Female
  Weight: 62 kg

DRUGS (2)
  1. VENCLEXTA [Suspect]
     Active Substance: VENETOCLAX
     Indication: Chronic lymphocytic leukaemia
     Dosage: FORM STRNGTH:100 MILLIGRAM
     Route: 048
     Dates: start: 20220722, end: 20240308
  2. OBINUTUZUMAB [Concomitant]
     Active Substance: OBINUTUZUMAB
     Indication: Chronic lymphocytic leukaemia
     Dosage: NOT REPORTED?FREQUENCY TEXT: 6 CYCLES
     Dates: start: 202307, end: 202311

REACTIONS (12)
  - Lymphoma [Unknown]
  - Fatigue [Unknown]
  - Skin burning sensation [Not Recovered/Not Resolved]
  - Inflammation [Not Recovered/Not Resolved]
  - Facial pain [Not Recovered/Not Resolved]
  - Eye inflammation [Not Recovered/Not Resolved]
  - Pain of skin [Unknown]
  - Weight increased [Unknown]
  - Inflammation [Not Recovered/Not Resolved]
  - Illness [Not Recovered/Not Resolved]
  - Hypersensitivity [Not Recovered/Not Resolved]
  - Body height decreased [Unknown]

NARRATIVE: CASE EVENT DATE: 20231201
